FAERS Safety Report 6660363-3 (Version None)
Quarter: 2010Q1

REPORT INFORMATION
  Report Type: 
  Country: None (occurrence: None)
  Receive Date: 20100330
  Receipt Date: 20100330
  Transmission Date: 20100710
  Serious: Yes (Other)
  Sender: FDA-Public Use
  Company Number: None

PATIENT
  Age: 54 Year
  Sex: Female
  Weight: 72.5755 kg

DRUGS (2)
  1. ELIDEL [Suspect]
     Indication: ECZEMA
     Dosage: 2/22/10 1 BEFORE BED 2/23/10 1 ??? AM
     Dates: start: 20100222
  2. ELIDEL [Suspect]
     Indication: ECZEMA
     Dosage: 2/22/10 1 BEFORE BED 2/23/10 1 ??? AM
     Dates: start: 20100223

REACTIONS (3)
  - EYE IRRITATION [None]
  - EYE SWELLING [None]
  - OCULAR HYPERAEMIA [None]
